FAERS Safety Report 14349249 (Version 2)
Quarter: 2018Q2

REPORT INFORMATION
  Report Type: Spontaneous
  Country: JP (occurrence: JP)
  Receive Date: 20180104
  Receipt Date: 20180403
  Transmission Date: 20180711
  Serious: Yes (Death)
  Sender: FDA-Public Use
  Company Number: JP-ACTELION-A-CH2017-165098

PATIENT
  Age: 60 Year
  Sex: Female

DRUGS (3)
  1. UPTRAVI [Suspect]
     Active Substance: SELEXIPAG
     Indication: PRODUCT USED FOR UNKNOWN INDICATION
     Dosage: 0.4 MG, QD
     Route: 048
     Dates: start: 20171215
  2. ADCIRCA [Concomitant]
     Active Substance: TADALAFIL
     Route: 048
  3. OPSUMIT [Concomitant]
     Active Substance: MACITENTAN
     Route: 048

REACTIONS (2)
  - Hepatic function abnormal [Fatal]
  - Renal impairment [Fatal]

NARRATIVE: CASE EVENT DATE: 20171217
